FAERS Safety Report 7607331-2 (Version None)
Quarter: 2011Q3

REPORT INFORMATION
  Report Type: 
  Country: None (occurrence: None)
  Receive Date: 20110712
  Receipt Date: 20110712
  Transmission Date: 20111222
  Serious: Yes (Hospitalization)
  Sender: FDA-Public Use
  Company Number: None

PATIENT
  Sex: Female
  Weight: 71.3 kg

DRUGS (2)
  1. PACLITAXEL [Suspect]
     Dosage: 438MG
     Dates: end: 20110329
  2. CARBOPLATIN [Suspect]
     Dosage: 678MG
     Dates: end: 20110315

REACTIONS (5)
  - HYPOMAGNESAEMIA [None]
  - HYPOTENSION [None]
  - URINARY TRACT INFECTION [None]
  - HYPOKALAEMIA [None]
  - ANAEMIA [None]
